FAERS Safety Report 23130318 (Version 1)
Quarter: 2023Q4

REPORT INFORMATION
  Report Type: Report from Study
  Country: US (occurrence: US)
  Receive Date: 20231031
  Receipt Date: 20231031
  Transmission Date: 20240110
  Serious: No
  Sender: FDA-Public Use
  Company Number: US-002147023-NVSC2023US229926

PATIENT
  Sex: Female

DRUGS (3)
  1. PIQRAY [Suspect]
     Active Substance: ALPELISIB
     Indication: Nausea
     Dosage: 200 MG, QD
     Route: 065
  2. PIQRAY [Suspect]
     Active Substance: ALPELISIB
     Indication: Vomiting
  3. PIQRAY [Suspect]
     Active Substance: ALPELISIB
     Indication: Tremor

REACTIONS (4)
  - Nausea [Unknown]
  - Vomiting [Unknown]
  - Tremor [Unknown]
  - Product use in unapproved indication [Unknown]
